FAERS Safety Report 24607682 (Version 1)
Quarter: 2024Q4

REPORT INFORMATION
  Report Type: Spontaneous
  Country: DE (occurrence: DE)
  Receive Date: 20241112
  Receipt Date: 20241112
  Transmission Date: 20250115
  Serious: Yes (Other)
  Sender: RANBAXY
  Company Number: DE-EMA-DD-20240930-7482829-075427

PATIENT
  Age: 52 Year
  Sex: Male

DRUGS (11)
  1. CIPROFLOXACIN [Suspect]
     Active Substance: CIPROFLOXACIN
     Indication: Endocarditis bacterial
     Dosage: UNK
     Route: 065
  2. MEROPENEM [Suspect]
     Active Substance: MEROPENEM
     Indication: Endocarditis bacterial
     Dosage: UNK
     Route: 065
  3. AMOXICILLIN [Suspect]
     Active Substance: AMOXICILLIN
     Indication: Endocarditis bacterial
     Dosage: UNK
     Route: 065
  4. AMPICILLIN [Suspect]
     Active Substance: AMPICILLIN
     Indication: Endocarditis bacterial
     Dosage: UNK
     Route: 065
  5. VANCOMYCIN [Suspect]
     Active Substance: VANCOMYCIN
     Indication: Endocarditis bacterial
     Dosage: UNK
     Route: 065
  6. PENICILLIN [Suspect]
     Active Substance: PENICILLIN
     Indication: Endocarditis bacterial
     Dosage: UNK
     Route: 065
  7. RIFAMPIN [Suspect]
     Active Substance: RIFAMPIN
     Indication: Endocarditis bacterial
     Dosage: UNK
     Route: 065
  8. DOXYCYCLINE [Suspect]
     Active Substance: DOXYCYCLINE
     Indication: Endocarditis bacterial
     Dosage: UNK
     Route: 065
  9. DICLOFENAC [Concomitant]
     Active Substance: DICLOFENAC
     Indication: Endocarditis bacterial
     Dosage: UNK
     Route: 065
  10. FLUCLOXACILLIN [Concomitant]
     Active Substance: FLUCLOXACILLIN
     Indication: Endocarditis bacterial
     Dosage: UNK
     Route: 065
  11. GENTAMICIN [Concomitant]
     Active Substance: GENTAMICIN
     Indication: Endocarditis bacterial
     Dosage: UNK
     Route: 065

REACTIONS (4)
  - Dermatitis exfoliative generalised [Unknown]
  - Multiple drug hypersensitivity [Unknown]
  - Type IV hypersensitivity reaction [Unknown]
  - Rash [Unknown]
